FAERS Safety Report 9284131 (Version 3)
Quarter: 2013Q4

REPORT INFORMATION
  Report Type: Spontaneous
  Country: AT (occurrence: AT)
  Receive Date: 20130510
  Receipt Date: 20131011
  Transmission Date: 20140711
  Serious: Yes (Other)
  Sender: FDA-Public Use
  Company Number: AT-B.I. PHARMACEUTICALS,INC./RIDGEFIELD-2013-AP-00362AP

PATIENT
  Sex: Male
  Weight: 82 kg

DRUGS (1)
  1. SPIRIVA RESPIMAT [Suspect]
     Indication: CHRONIC OBSTRUCTIVE PULMONARY DISEASE
     Dosage: 2 PUF
     Route: 055

REACTIONS (5)
  - Hypertensive crisis [Recovered/Resolved]
  - Dry mouth [Recovered/Resolved]
  - Tachycardia [Recovered/Resolved]
  - Accidental overdose [Unknown]
  - Product quality issue [Unknown]
